FAERS Safety Report 18114862 (Version 2)
Quarter: 2020Q3

REPORT INFORMATION
  Report Type: Report from Study
  Country: US (occurrence: US)
  Receive Date: 20200805
  Receipt Date: 20200820
  Transmission Date: 20201103
  Serious: Yes (Hospitalization, Other)
  Sender: FDA-Public Use
  Company Number: US-PFIZER INC-2020295399

PATIENT
  Sex: Female
  Weight: 1.8 kg

DRUGS (7)
  1. ABILIFY [Suspect]
     Active Substance: ARIPIPRAZOLE
     Indication: BIPOLAR DISORDER
     Dosage: 5 MG, 22 WEEKS ? DELIVERY
     Route: 064
     Dates: end: 20190430
  2. WELLBUTRIN XL [Suspect]
     Active Substance: BUPROPION HYDROCHLORIDE
     Indication: BIPOLAR DISORDER
     Dosage: BEFORE LMP ? DELIVERY
     Route: 064
     Dates: end: 20190430
  3. LABETALOL HYDROCHLORIDE. [Suspect]
     Active Substance: LABETALOL HYDROCHLORIDE
     Indication: HYPERTENSION
     Dosage: 36 WEEKS ? DELIVERY
     Route: 064
     Dates: end: 20190430
  4. NIFEDIPINE. [Suspect]
     Active Substance: NIFEDIPINE
     Indication: HYPERTENSION
     Dosage: 30 WEEKS ? DELIVERY
     Route: 064
     Dates: end: 20190430
  5. LITHIUM. [Suspect]
     Active Substance: LITHIUM
     Indication: BIPOLAR DISORDER
     Dosage: 18WEEKS ? 22WEEKS
     Route: 064
  6. BABY ASPIRIN [Suspect]
     Active Substance: ASPIRIN
     Indication: HYPERTENSION
     Dosage: 81 MG, 20 WEEK? DELIVERY
     Route: 064
     Dates: end: 20190430
  7. LEVOTHYROXINE SODIUM. [Suspect]
     Active Substance: LEVOTHYROXINE SODIUM
     Indication: HYPOTHYROIDISM
     Dosage: BEFORE LMP ? DELIVERY
     Route: 064
     Dates: end: 20190430

REACTIONS (7)
  - Maternal exposure timing unspecified [Unknown]
  - Foetal growth restriction [Not Recovered/Not Resolved]
  - Low birth weight baby [Not Recovered/Not Resolved]
  - Premature baby [Recovered/Resolved]
  - Infantile haemangioma [Not Recovered/Not Resolved]
  - Small for dates baby [Not Recovered/Not Resolved]
  - Breech presentation [Recovered/Resolved]

NARRATIVE: CASE EVENT DATE: 20190430
